FAERS Safety Report 7596683-8 (Version None)
Quarter: 2011Q3

REPORT INFORMATION
  Report Type: 
  Country: None (occurrence: None)
  Receive Date: 20110708
  Receipt Date: 20110627
  Transmission Date: 20111222
  Serious: Yes (Hospitalization)
  Sender: FDA-Public Use
  Company Number: US-ELI_LILLY_AND_COMPANY-US201107001385

PATIENT
  Sex: Female

DRUGS (5)
  1. SYMBICORT [Concomitant]
  2. FORTEO [Suspect]
     Dosage: 20 UG, QD
  3. ZOLADEX [Concomitant]
     Indication: ENDOMETRIOSIS
  4. FORTEO [Suspect]
     Indication: OSTEOPOROSIS
     Dosage: 20 UG, QD
     Dates: start: 20110506
  5. CLARITIN [Concomitant]
     Indication: HYPERSENSITIVITY
     Dosage: UNK, QD

REACTIONS (3)
  - PERIPHERAL ARTERY ANEURYSM [None]
  - POST PROCEDURAL COMPLICATION [None]
  - DRUG DOSE OMISSION [None]
